FAERS Safety Report 8206269-X (Version None)
Quarter: 2012Q1

REPORT INFORMATION
  Report Type: 
  Country: None (occurrence: None)
  Receive Date: 20120313
  Receipt Date: 20120302
  Transmission Date: 20120608
  Serious: Yes (Other)
  Sender: FDA-Public Use
  Company Number: PHHY2011JP108113

PATIENT
  Sex: Female

DRUGS (6)
  1. ALDACTONE [Concomitant]
     Indication: OEDEMA
     Dosage: 25 MG, UNK
     Dates: start: 20110407
  2. TASIGNA [Suspect]
     Dosage: 300 MG, DAILY
     Route: 048
     Dates: start: 20111201, end: 20120126
  3. ALBUMIN TANNATE [Concomitant]
     Indication: DIARRHOEA
     Dosage: 3 G, UNK
     Dates: start: 20101209
  4. LASIX [Concomitant]
     Indication: OEDEMA
     Dosage: 20 MG, UNK
     Dates: start: 20101209
  5. LAC B [Concomitant]
     Indication: DIARRHOEA
     Dosage: UNK
     Dates: start: 20101209
  6. TASIGNA [Suspect]
     Indication: CHRONIC MYELOID LEUKAEMIA
     Dosage: 600 MG, DAILY
     Route: 048
     Dates: start: 20111013, end: 20111201

REACTIONS (7)
  - VENTRICULAR EXTRASYSTOLES [None]
  - SUPRAVENTRICULAR EXTRASYSTOLES [None]
  - MALAISE [None]
  - DIARRHOEA [None]
  - PRURITUS [None]
  - CHRONIC MYELOID LEUKAEMIA [None]
  - NEOPLASM MALIGNANT [None]
